FAERS Safety Report 5849309-5 (Version None)
Quarter: 2008Q3

REPORT INFORMATION
  Report Type: 
  Country: None (occurrence: None)
  Receive Date: 20080819
  Receipt Date: 20080807
  Transmission Date: 20090109
  Serious: Yes (Other)
  Sender: FDA-Public Use
  Company Number: GB-AMGEN-UK299943

PATIENT
  Age: 61 Year
  Sex: Male

DRUGS (4)
  1. NEULASTA [Suspect]
     Indication: CHEMOTHERAPY
     Dates: start: 20080710
  2. FLUDARABINE [Concomitant]
     Dates: start: 20080705, end: 20080709
  3. CYTARABINE [Concomitant]
     Dates: start: 20080705, end: 20080709
  4. IDARUBICIN HCL [Concomitant]
     Dates: start: 20080705, end: 20080709

REACTIONS (1)
  - NEUTROPENIC SEPSIS [None]
